FAERS Safety Report 17601743 (Version 1)
Quarter: 2020Q1

REPORT INFORMATION
  Report Type: Report from Study
  Country: US (occurrence: US)
  Receive Date: 20200330
  Receipt Date: 20200330
  Transmission Date: 20200409
  Serious: Yes (Death, Hospitalization)
  Sender: FDA-Public Use
  Company Number: US-ACTELION-A-US2018-177852

PATIENT
  Age: 68 Year
  Sex: Female
  Weight: 51.7 kg

DRUGS (4)
  1. VELETRI [Suspect]
     Active Substance: EPOPROSTENOL
     Indication: PULMONARY ARTERIAL HYPERTENSION
     Dosage: 55.5 NG/KG, PER MIN
     Route: 042
  2. ADEMPAS [Suspect]
     Active Substance: RIOCIGUAT
     Indication: PRODUCT USED FOR UNKNOWN INDICATION
     Dosage: UNK
     Route: 048
  3. AMBRISENTAN [Concomitant]
     Active Substance: AMBRISENTAN
  4. LETAIRIS [Suspect]
     Active Substance: AMBRISENTAN
     Indication: PRODUCT USED FOR UNKNOWN INDICATION
     Dosage: UNK
     Route: 065

REACTIONS (16)
  - Pain [Unknown]
  - Dyspnoea [Unknown]
  - Arthritis [Unknown]
  - Arthralgia [Unknown]
  - Headache [Not Recovered/Not Resolved]
  - Back pain [Unknown]
  - Hypotension [Unknown]
  - Cough [Unknown]
  - Death [Fatal]
  - Pain in jaw [Unknown]
  - Alopecia [Unknown]
  - Fatigue [Unknown]
  - Nasopharyngitis [Unknown]
  - Dyspepsia [Unknown]
  - Dyspnoea exertional [Unknown]
  - Eructation [Unknown]

NARRATIVE: CASE EVENT DATE: 20200317
